FAERS Safety Report 8078495-4 (Version None)
Quarter: 2012Q1

REPORT INFORMATION
  Report Type: 
  Country: None (occurrence: None)
  Receive Date: 20120123
  Receipt Date: 20120114
  Transmission Date: 20120608
  Serious: No
  Sender: FDA-Public Use
  Company Number: 2012-00013

PATIENT
  Age: 75 Year
  Sex: Male
  Weight: 65.77 kg

DRUGS (4)
  1. RED YEAST RICE [Concomitant]
  2. ZETIA [Concomitant]
  3. ZICAM COLD REMEDY ORAL MIST [Suspect]
     Indication: NASOPHARYNGITIS
     Dosage: SPRAYED TWICE INTO MOUTH 4QH
     Route: 048
     Dates: start: 20120111, end: 20120112
  4. NIACIN [Concomitant]

REACTIONS (1)
  - AGEUSIA [None]
